FAERS Safety Report 7546000-4 (Version None)
Quarter: 2011Q2

REPORT INFORMATION
  Report Type: 
  Country: None (occurrence: None)
  Receive Date: 20110614
  Receipt Date: 20110601
  Transmission Date: 20111010
  Serious: Yes (Other)
  Sender: FDA-Public Use
  Company Number: PHHY2011AU48096

PATIENT
  Age: 77 Year
  Sex: Male

DRUGS (1)
  1. ZOLEDRONIC ACID [Suspect]
     Route: 042
     Dates: start: 20110531

REACTIONS (8)
  - FAECAL INCONTINENCE [None]
  - NIGHT SWEATS [None]
  - DEHYDRATION [None]
  - PYREXIA [None]
  - DIZZINESS [None]
  - URINARY INCONTINENCE [None]
  - HYPOTENSION [None]
  - CHILLS [None]
